FAERS Safety Report 7560639-1 (Version None)
Quarter: 2011Q2

REPORT INFORMATION
  Report Type: 
  Country: None (occurrence: None)
  Receive Date: 20110617
  Receipt Date: 20110617
  Transmission Date: 20111010
  Serious: No
  Sender: FDA-Public Use
  Company Number: None

PATIENT
  Age: 57 Year
  Sex: Female
  Weight: 47.1741 kg

DRUGS (2)
  1. FENTANYL [Suspect]
  2. FENTANYL [Suspect]
     Indication: CANCER PAIN
     Dosage: 75 UCG HR TRANSDERMAL
     Route: 062
     Dates: start: 20110604

REACTIONS (2)
  - PRODUCT SUBSTITUTION ISSUE [None]
  - DRUG INEFFECTIVE [None]
